FAERS Safety Report 8522157-3 (Version None)
Quarter: 2012Q3

REPORT INFORMATION
  Report Type: 
  Country: None (occurrence: None)
  Receive Date: 20120719
  Receipt Date: 20120712
  Transmission Date: 20120928
  Serious: Yes (Other)
  Sender: FDA-Public Use
  Company Number: CN-BAYER-2012-069704

PATIENT

DRUGS (6)
  1. ASPIRIN [Suspect]
  2. MECOBALAMIN [Concomitant]
     Dosage: UNK
     Dates: start: 20120401, end: 20120101
  3. CELEBREX [Concomitant]
     Dosage: UNK
     Dates: start: 20120401, end: 20120101
  4. ROSUVASTATIN [Suspect]
  5. TIANDANTONGLUO [Suspect]
  6. NIMODIPINE [Suspect]
     Dosage: UNK

REACTIONS (2)
  - HUNGER [None]
  - GASTRITIS ATROPHIC [None]
